FAERS Safety Report 6264687-3 (Version None)
Quarter: 2009Q3

REPORT INFORMATION
  Report Type: 
  Country: None (occurrence: None)
  Receive Date: 20090710
  Receipt Date: 20090629
  Transmission Date: 20100115
  Serious: Yes (Hospitalization)
  Sender: FDA-Public Use
  Company Number: ES-ELI_LILLY_AND_COMPANY-ES200906006982

PATIENT
  Age: 28 Year
  Sex: Female

DRUGS (11)
  1. FORTEO [Suspect]
     Indication: OSTEOPOROSIS
     Dosage: 20 UG, UNKNOWN
     Route: 058
     Dates: start: 20081201
  2. URBASON /00049601/ [Concomitant]
     Dosage: UNK, UNKNOWN
     Route: 065
  3. VENTOLIN [Concomitant]
     Dosage: UNK, UNKNOWN
     Route: 065
  4. ATROVENT [Concomitant]
     Dosage: UNK, UNKNOWN
     Route: 065
  5. SINGULAIR [Concomitant]
     Dosage: UNK, UNKNOWN
     Route: 065
  6. THEOLAIR /00012201/ [Concomitant]
     Dosage: UNK, UNKNOWN
     Route: 065
  7. SPIRIVA [Concomitant]
     Dosage: UNK, UNKNOWN
     Route: 065
  8. LEXUM [Concomitant]
     Dosage: UNK, UNKNOWN
     Route: 065
  9. LEVEMIR [Concomitant]
     Indication: DIABETES MELLITUS
     Dosage: UNK, UNKNOWN
     Route: 065
  10. DIAMICRON [Concomitant]
     Indication: DIABETES MELLITUS
     Dosage: UNK, UNKNOWN
     Route: 065
  11. NATECAL D [Concomitant]
     Indication: OSTEOPOROSIS
     Dosage: UNK, UNKNOWN
     Route: 065

REACTIONS (4)
  - ASTHMA [None]
  - BLOOD GLUCOSE DECREASED [None]
  - PYREXIA [None]
  - RESPIRATORY TRACT INFECTION [None]
